FAERS Safety Report 6982565-9 (Version None)
Quarter: 2010Q3

REPORT INFORMATION
  Report Type: 
  Country: None (occurrence: None)
  Receive Date: 20100914
  Receipt Date: 20100217
  Transmission Date: 20110219
  Serious: No
  Sender: FDA-Public Use
  Company Number: US-PFIZER INC-2010023809

PATIENT
  Age: 76 Year
  Sex: Male

DRUGS (1)
  1. LYRICA [Suspect]
     Indication: RESTLESS LEGS SYNDROME
     Dosage: UNK
     Dates: start: 20090101, end: 20090101

REACTIONS (1)
  - WEIGHT INCREASED [None]
